FAERS Safety Report 13875230 (Version 1)
Quarter: 2017Q3

REPORT INFORMATION
  Report Type: Spontaneous
  Country: CN (occurrence: CN)
  Receive Date: 20170816
  Receipt Date: 20170816
  Transmission Date: 20171127
  Serious: Yes (Other)
  Sender: FDA-Public Use
  Company Number: CN-ROCHE-1975480

PATIENT
  Sex: Male
  Weight: 60 kg

DRUGS (2)
  1. SODIUM CHLORIDE. [Concomitant]
     Active Substance: SODIUM CHLORIDE
     Route: 041
     Dates: start: 20170527, end: 20170527
  2. ROCEPHIN [Suspect]
     Active Substance: CEFTRIAXONE SODIUM
     Indication: INFECTION
     Route: 041
     Dates: start: 20170527, end: 20170527

REACTIONS (6)
  - Localised oedema [Recovering/Resolving]
  - Pruritus [Recovering/Resolving]
  - Flushing [Recovering/Resolving]
  - Blood pressure decreased [Recovering/Resolving]
  - Arrhythmia [Recovering/Resolving]
  - Rash [Recovering/Resolving]

NARRATIVE: CASE EVENT DATE: 20170527
